FAERS Safety Report 18607824 (Version 1)
Quarter: 2020Q4

REPORT INFORMATION
  Report Type: Spontaneous
  Country: JP (occurrence: JP)
  Receive Date: 20201211
  Receipt Date: 20201211
  Transmission Date: 20210114
  Serious: Yes (Death, Other)
  Sender: FDA-Public Use
  Company Number: JP-009507513-2012JPN000831J

PATIENT
  Age: 59 Year
  Sex: Male

DRUGS (1)
  1. KEYTRUDA [Suspect]
     Active Substance: PEMBROLIZUMAB
     Indication: LUNG ADENOCARCINOMA STAGE IV
     Dosage: 200 MILLIGRAM, Q3W
     Route: 041

REACTIONS (4)
  - Infection [Fatal]
  - Liver disorder [Fatal]
  - Haemophagocytic lymphohistiocytosis [Fatal]
  - Immune thrombocytopenia [Fatal]

NARRATIVE: CASE EVENT DATE: 202009
